FAERS Safety Report 16653202 (Version 1)
Quarter: 2019Q3

REPORT INFORMATION
  Report Type: Spontaneous
  Country: CA (occurrence: CA)
  Receive Date: 20190731
  Receipt Date: 20190731
  Transmission Date: 20191004
  Serious: Yes (Other)
  Sender: FDA-Public Use
  Company Number: CA-TEVA-2019-CA-1084130

PATIENT
  Age: 72 Year
  Sex: Male

DRUGS (6)
  1. IRBESARTAN. [Concomitant]
     Active Substance: IRBESARTAN
     Route: 065
  2. REPAGLINIDE. [Concomitant]
     Active Substance: REPAGLINIDE
     Indication: TYPE 2 DIABETES MELLITUS
     Route: 065
  3. ALLOPURINOL. [Concomitant]
     Active Substance: ALLOPURINOL
     Route: 065
  4. ROSUVASTATIN. [Suspect]
     Active Substance: ROSUVASTATIN
     Route: 065
  5. COLCHICINE. [Suspect]
     Active Substance: COLCHICINE
     Indication: GOUT
     Route: 065
  6. ACARBOSE. [Concomitant]
     Active Substance: ACARBOSE
     Indication: TYPE 2 DIABETES MELLITUS
     Route: 065

REACTIONS (4)
  - Muscle necrosis [Recovered/Resolved]
  - Rhabdomyolysis [Recovered/Resolved]
  - Mobility decreased [Recovered/Resolved]
  - Myopathy [Recovered/Resolved]
